FAERS Safety Report 13021216 (Version 1)
Quarter: 2016Q4

REPORT INFORMATION
  Report Type: Other
  Country: US (occurrence: US)
  Receive Date: 20161213
  Receipt Date: 20161213
  Transmission Date: 20170207
  Serious: Yes (Life-Threatening, Hospitalization)
  Sender: FDA-Public Use
  Company Number: US-NOVEL LABORATORIES, INC-2016-04343

PATIENT
  Age: 12 Year
  Sex: Male

DRUGS (8)
  1. METHYLPHENIDATE. [Suspect]
     Active Substance: METHYLPHENIDATE
     Indication: SLEEP DISORDER
     Dosage: 36 MG Q. A.M
     Route: 065
  2. PAROXETINE. [Suspect]
     Active Substance: PAROXETINE
     Indication: BIPOLAR DISORDER
     Route: 065
  3. PRAMIPEXOLE. [Suspect]
     Active Substance: PRAMIPEXOLE
     Indication: BIPOLAR DISORDER
     Dosage: 0.125 MG AT BEDTIME
     Route: 065
  4. RISPERIDONE EXTENDED RELEASE [Suspect]
     Active Substance: RISPERIDONE
     Indication: SLEEP DISORDER
     Route: 065
  5. RISPERIDONE EXTENDED RELEASE [Suspect]
     Active Substance: RISPERIDONE
     Dosage: 0.5 MG ON DAY 5 OF HOSPITALIZATION
     Route: 065
  6. VALPROIC ACID. [Suspect]
     Active Substance: VALPROIC ACID
     Indication: SLEEP DISORDER
     Dosage: 375 MG Q. A.M AND 500 MG AT BEDTIME
     Route: 065
  7. RISPERIDONE EXTENDED RELEASE [Suspect]
     Active Substance: RISPERIDONE
     Dosage: 0.5 MG Q. A.M. AND 1MG AT BEDTIME
     Route: 065
  8. MELATONIN [Concomitant]
     Active Substance: MELATONIN
     Indication: SLEEP DISORDER
     Dosage: 5MG AT BEDTIME AS NEEDED
     Route: 065

REACTIONS (1)
  - Neuroleptic malignant syndrome [Recovering/Resolving]
